FAERS Safety Report 5190360-9 (Version None)
Quarter: 2006Q4

REPORT INFORMATION
  Report Type: 
  Country: None (occurrence: None)
  Receive Date: 20061222
  Receipt Date: 20061027
  Transmission Date: 20070319
  Serious: Yes (Other)
  Sender: FDA-Public Use
  Company Number: PHMT2006CA02050

PATIENT
  Age: 38 Year
  Sex: Female

DRUGS (3)
  1. EXELON [Suspect]
     Indication: CEREBROVASCULAR ACCIDENT
     Dosage: 1.5 MG, BID
     Route: 048
  2. EXELON [Suspect]
     Dosage: 3.0 MG, BID
     Route: 048
  3. EFFEXOR XR [Concomitant]
     Dosage: 225 MG DAILY

REACTIONS (3)
  - HYPERHIDROSIS [None]
  - WEIGHT INCREASED [None]
  - WEIGHT LOSS POOR [None]
